FAERS Safety Report 21079324 (Version 2)
Quarter: 2022Q3

REPORT INFORMATION
  Report Type: Spontaneous
  Country: US (occurrence: US)
  Receive Date: 20220714
  Receipt Date: 20220715
  Transmission Date: 20221027
  Serious: Yes (Death, Disabling, Other)
  Sender: FDA-Public Use
  Company Number: US-ABBVIE-21K-163-4169856-00

PATIENT
  Age: 87 Year
  Sex: Male
  Weight: 93.524 kg

DRUGS (6)
  1. IBRUTINIB [Suspect]
     Active Substance: IBRUTINIB
     Indication: B-cell small lymphocytic lymphoma
     Route: 048
     Dates: start: 20160123, end: 201601
  2. IBRUTINIB [Suspect]
     Active Substance: IBRUTINIB
     Route: 048
     Dates: start: 20160128, end: 20160129
  3. IBRUTINIB [Suspect]
     Active Substance: IBRUTINIB
     Route: 048
     Dates: start: 20160225, end: 20160310
  4. ZYDELIG [Suspect]
     Active Substance: IDELALISIB
     Indication: Product used for unknown indication
     Route: 048
     Dates: end: 20150123
  5. PRIMIDONE [Concomitant]
     Active Substance: PRIMIDONE
     Indication: Tremor
     Route: 048
     Dates: start: 20160625
  6. IMIPRAMINE HYDROCHLORIDE [Concomitant]
     Active Substance: IMIPRAMINE HYDROCHLORIDE
     Indication: Depression
     Route: 048

REACTIONS (39)
  - Chronic lymphocytic leukaemia [Fatal]
  - Fatigue [Unknown]
  - Non-Hodgkin^s lymphoma [Unknown]
  - B-cell small lymphocytic lymphoma [Unknown]
  - Neoplasm malignant [Unknown]
  - Diffuse large B-cell lymphoma [Unknown]
  - Renal cyst [Unknown]
  - Urinary incontinence [Unknown]
  - Bladder mass [Unknown]
  - Chronic kidney disease [Unknown]
  - Pulmonary mass [Unknown]
  - Cerumen impaction [Unknown]
  - Hyperglycaemia [Unknown]
  - Periodontal disease [Unknown]
  - Nicotine dependence [Unknown]
  - Hypoacusis [Unknown]
  - Hyperlipidaemia [Unknown]
  - Hypothyroidism [Unknown]
  - Vitamin D deficiency [Unknown]
  - Sinus bradycardia [Unknown]
  - Bradycardia [Unknown]
  - Lymphadenopathy [Unknown]
  - Electrocardiogram abnormal [Unknown]
  - Cervical radiculopathy [Unknown]
  - Lumbar spinal stenosis [Unknown]
  - Respiratory disorder [Unknown]
  - Dysuria [Unknown]
  - Nocturia [Unknown]
  - Impaired quality of life [Unknown]
  - Tremor [Unknown]
  - Gingival disorder [Unknown]
  - Thrombocytopenia [Unknown]
  - Infected dermal cyst [Unknown]
  - Hypertension [Unknown]
  - Asthenia [Unknown]
  - Arthralgia [Unknown]
  - Upper respiratory tract infection [Unknown]
  - Pneumonia [Unknown]
  - Viral infection [Unknown]

NARRATIVE: CASE EVENT DATE: 20160225
